FAERS Safety Report 9577232 (Version 1)
Quarter: 2013Q4

REPORT INFORMATION
  Report Type: Spontaneous
  Country: US (occurrence: US)
  Receive Date: 20131001
  Receipt Date: 20131001
  Transmission Date: 20140711
  Serious: No
  Sender: FDA-Public Use
  Company Number: US-AMGEN-USASP2013006944

PATIENT
  Sex: Female

DRUGS (6)
  1. ENBREL [Suspect]
     Indication: RHEUMATOID ARTHRITIS
     Dosage: 50 MG, QWK
     Route: 058
  2. OMEPRAZOLE [Concomitant]
     Dosage: 20 MG, UNK
  3. ADVAIR [Concomitant]
     Dosage: 100/50
  4. CELEXA                             /00582602/ [Concomitant]
     Dosage: 20 MG, UNK
  5. VITAMIN B COMPLEX [Concomitant]
     Dosage: UNK
  6. VITAMIN D                          /00107901/ [Concomitant]
     Dosage: 1000 UNIT, UNK

REACTIONS (3)
  - Injection site bruising [Unknown]
  - Injection site warmth [Unknown]
  - Injection site erythema [Unknown]
